FAERS Safety Report 14242557 (Version 1)
Quarter: 2017Q4

REPORT INFORMATION
  Report Type: Spontaneous
  Country: US (occurrence: US)
  Receive Date: 20171201
  Receipt Date: 20171201
  Transmission Date: 20180321
  Serious: Yes (Other)
  Sender: FDA-Public Use
  Company Number: US-TEVA-771252USA

PATIENT
  Sex: Female

DRUGS (1)
  1. DILTIAZEM ER [Suspect]
     Active Substance: DILTIAZEM
     Dosage: ONCE A DAY
     Route: 065
     Dates: start: 2009, end: 2009

REACTIONS (3)
  - Swelling face [Recovered/Resolved]
  - Angioedema [Recovered/Resolved]
  - Lip swelling [Recovered/Resolved]

NARRATIVE: CASE EVENT DATE: 2009
